FAERS Safety Report 7949802-5 (Version None)
Quarter: 2011Q4

REPORT INFORMATION
  Report Type: 
  Country: None (occurrence: None)
  Receive Date: 20111130
  Receipt Date: 20111125
  Transmission Date: 20120403
  Serious: Yes (Other)
  Sender: FDA-Public Use
  Company Number: IE-MERCK-1110GBR00048

PATIENT
  Age: 28 Year
  Sex: Male
  Weight: 75 kg

DRUGS (2)
  1. PROSCAR [Suspect]
     Indication: ALOPECIA
     Route: 048
     Dates: start: 20070101, end: 20090101
  2. INSULIN [Concomitant]
     Indication: TYPE 1 DIABETES MELLITUS
     Route: 065
     Dates: start: 20100101

REACTIONS (4)
  - TYPE 1 DIABETES MELLITUS [None]
  - OVERDOSE [None]
  - PANCREATITIS CHRONIC [None]
  - OFF LABEL USE [None]
